FAERS Safety Report 4626796-1 (Version None)
Quarter: 2005Q2

REPORT INFORMATION
  Report Type: 
  Country: None (occurrence: None)
  Receive Date: 20050401
  Receipt Date: 20050401
  Transmission Date: 20051028
  Serious: Yes (Death)
  Sender: FDA-Public Use
  Company Number: None

PATIENT
  Age: 53 Year
  Sex: Male
  Weight: 79.3795 kg

DRUGS (8)
  1. VELCADE [Suspect]
     Indication: NON-SMALL CELL LUNG CANCER
     Dosage: 1.0 MG
     Dates: start: 20041102, end: 20041203
  2. TAXOL [Suspect]
     Indication: NON-SMALL CELL LUNG CANCER
     Dosage: 100 MG
     Dates: start: 20041112, end: 20041207
  3. CARBOPLATIN [Suspect]
     Indication: NON-SMALL CELL LUNG CANCER
     Dosage: 246 MG
     Dates: start: 20041102, end: 20041207
  4. IBUPROFEN [Concomitant]
  5. ALBUTEROL [Concomitant]
  6. ATROVENT [Concomitant]
  7. MORPHINE SULFATE [Concomitant]
  8. PROTONIX [Concomitant]

REACTIONS (3)
  - BRONCHOPULMONARY DISEASE [None]
  - HAEMOPTYSIS [None]
  - PROCEDURAL COMPLICATION [None]
